FAERS Safety Report 10148507 (Version 3)
Quarter: 2014Q2

REPORT INFORMATION
  Report Type: Spontaneous
  Country: US (occurrence: US)
  Receive Date: 20140501
  Receipt Date: 20140602
  Transmission Date: 20141212
  Serious: Yes (Other)
  Sender: FDA-Public Use
  Company Number: US-AMGEN-USASP2014022855

PATIENT
  Age: 46 Year
  Sex: Female

DRUGS (5)
  1. ENBREL [Suspect]
     Indication: RHEUMATOID ARTHRITIS
     Dosage: 50 MG, WEEKLY
     Route: 058
     Dates: start: 20140214, end: 201404
  2. PLAQUENIL                          /00072602/ [Concomitant]
     Dosage: 200 MG, BID
  3. PREDNISONE [Concomitant]
     Dosage: 5 MG, QD
  4. MTX                                /00113801/ [Concomitant]
     Dosage: 15 MG, QWK
  5. FOLIC ACID [Concomitant]
     Dosage: 1 MG, QD

REACTIONS (9)
  - Injection site hypersensitivity [Recovered/Resolved]
  - Injection site reaction [Not Recovered/Not Resolved]
  - Injection site erythema [Recovered/Resolved]
  - Injection site swelling [Not Recovered/Not Resolved]
  - Injection site pruritus [Recovered/Resolved]
  - Injection site warmth [Recovered/Resolved]
  - Injection site pain [Unknown]
  - Injection site urticaria [Recovered/Resolved]
  - Injection site discomfort [Recovered/Resolved]
